FAERS Safety Report 19983816 (Version 1)
Quarter: 2021Q4

REPORT INFORMATION
  Report Type: Spontaneous
  Country: FR (occurrence: FR)
  Receive Date: 20211021
  Receipt Date: 20211021
  Transmission Date: 20220303
  Serious: Yes (Life-Threatening, Hospitalization, Other)
  Sender: FDA-Public Use
  Company Number: FR-RENAUDINFR-2021000307

PATIENT
  Age: 67 Year
  Sex: Female
  Weight: 85 kg

DRUGS (5)
  1. REMIFENTANIL [Suspect]
     Active Substance: REMIFENTANIL
     Indication: Anaesthesia
     Dosage: 100 MICROGRAM, TOTAL
     Route: 040
  2. REMIFENTANIL [Suspect]
     Active Substance: REMIFENTANIL
     Indication: Neuromuscular blockade
  3. KETAMINE [Suspect]
     Active Substance: KETAMINE
     Indication: Anaesthesia
     Dosage: 250 MILLIGRAM TOTAL
     Route: 040
  4. KETAMINE [Suspect]
     Active Substance: KETAMINE
     Indication: Neuromuscular blockade
  5. SUCCINYLCHOLINE [Suspect]
     Active Substance: SUCCINYLCHOLINE
     Indication: Neuromuscular blockade
     Dosage: 90 MILLIGRAM TOTAL
     Route: 040

REACTIONS (3)
  - Airway complication of anaesthesia [Recovered/Resolved with Sequelae]
  - Laryngeal oedema [Recovered/Resolved]
  - Drug resistance [Recovered/Resolved]
